FAERS Safety Report 5013295-0 (Version None)
Quarter: 2006Q2

REPORT INFORMATION
  Report Type: 
  Country: None (occurrence: None)
  Receive Date: 20060530
  Receipt Date: 20060216
  Transmission Date: 20061013
  Serious: Yes (Hospitalization)
  Sender: FDA-Public Use
  Company Number: PHHO2006US02870

PATIENT
  Age: 46 Year
  Sex: Female
  Weight: 56.8 kg

DRUGS (3)
  1. MYFORTIC [Suspect]
     Indication: RENAL TRANSPLANT
     Dosage: 720 MG, BID
     Route: 048
  2. PREDNISONE [Concomitant]
     Indication: RENAL TRANSPLANT
     Route: 048
  3. NEORAL [Suspect]
     Indication: RENAL TRANSPLANT
     Dosage: UNK, UNK
     Route: 048
     Dates: start: 19980113

REACTIONS (9)
  - ASCITES [None]
  - ASTHENIA [None]
  - CHOLELITHIASIS [None]
  - CYTOMEGALOVIRUS ANTIGEN POSITIVE [None]
  - DYSPNOEA [None]
  - HEPATIC CIRRHOSIS [None]
  - PULMONARY OEDEMA [None]
  - RENAL IMPAIRMENT [None]
  - URINARY TRACT INFECTION [None]
